FAERS Safety Report 4617248-3 (Version None)
Quarter: 2005Q1

REPORT INFORMATION
  Report Type: 
  Country: None (occurrence: None)
  Receive Date: 20050323
  Receipt Date: 20050315
  Transmission Date: 20050727
  Serious: Yes (Hospitalization, Disabling)
  Sender: FDA-Public Use
  Company Number: PHHO2005MY04326

PATIENT
  Age: 53 Year
  Sex: Female
  Weight: 53 kg

DRUGS (3)
  1. GLEEVEC [Suspect]
     Indication: CHRONIC MYELOID LEUKAEMIA
     Dosage: 400 MG, QD
     Route: 048
     Dates: start: 20041126, end: 20050305
  2. ALLOPURINOL [Concomitant]
     Indication: GOUT
     Dosage: 100 MG
  3. PIRITON [Concomitant]
     Indication: PRURITUS
     Dosage: 4 MG TABS
     Dates: end: 20050205

REACTIONS (2)
  - OEDEMA PERIPHERAL [None]
  - THROMBOCYTHAEMIA [None]
